FAERS Safety Report 7866592-5 (Version None)
Quarter: 2011Q4

REPORT INFORMATION
  Report Type: 
  Country: None (occurrence: None)
  Receive Date: 20111028
  Receipt Date: 20110712
  Transmission Date: 20120403
  Serious: No
  Sender: FDA-Public Use
  Company Number: US-GLAXOSMITHKLINE-A0936485A

PATIENT
  Age: 76 Year
  Sex: Female

DRUGS (4)
  1. EUCALYPTUS OIL [Concomitant]
  2. ADVAIR DISKUS 100/50 [Suspect]
     Indication: CHRONIC OBSTRUCTIVE PULMONARY DISEASE
     Dosage: 1PUFF PER DAY
     Route: 055
     Dates: start: 20110710
  3. PROAIR HFA [Concomitant]
  4. THYROID TAB [Concomitant]

REACTIONS (7)
  - FEELING JITTERY [None]
  - FLATULENCE [None]
  - HEART RATE DECREASED [None]
  - ABDOMINAL DISTENSION [None]
  - NAUSEA [None]
  - ERUCTATION [None]
  - ILL-DEFINED DISORDER [None]
